FAERS Safety Report 6298012-9 (Version None)
Quarter: 2009Q3

REPORT INFORMATION
  Report Type: 
  Country: None (occurrence: None)
  Receive Date: 20090805
  Receipt Date: 20090730
  Transmission Date: 20100115
  Serious: Yes (Hospitalization)
  Sender: FDA-Public Use
  Company Number: US-JNJFOC-20061006824

PATIENT
  Sex: Male
  Weight: 97.52 kg

DRUGS (2)
  1. RISPERDAL [Suspect]
     Indication: DEPRESSION
  2. SEROQUEL [Suspect]
     Indication: DEPRESSION

REACTIONS (2)
  - DIABETES MELLITUS [None]
  - SUICIDE ATTEMPT [None]
